FAERS Safety Report 7659918-9 (Version None)
Quarter: 2011Q3

REPORT INFORMATION
  Report Type: 
  Country: None (occurrence: None)
  Receive Date: 20110802
  Receipt Date: 20110727
  Transmission Date: 20111222
  Serious: Yes (Death, Other)
  Sender: FDA-Public Use
  Company Number: 2011SP035400

PATIENT
  Age: 51 Year
  Sex: Male

DRUGS (4)
  1. PEG-INTRON [Suspect]
     Indication: HEPATITIS C
     Dosage: 1.5 MCG/KG, QW, SC
     Route: 058
  2. REBETOL [Suspect]
     Indication: HEPATITIS C
     Dosage: 400 MG, QD, PO
     Route: 048
  3. CYCLOSPORINE [Concomitant]
  4. PEGASYS [Suspect]
     Indication: HEPATITIS C
     Dosage: SC
     Route: 058

REACTIONS (6)
  - PNEUMOCYSTIS JIROVECI PNEUMONIA [None]
  - ANAEMIA [None]
  - AUTOIMMUNE HEPATITIS [None]
  - RESPIRATORY DISTRESS [None]
  - MULTI-ORGAN FAILURE [None]
  - HAEMODIALYSIS [None]
